FAERS Safety Report 9243345 (Version 2)
Quarter: 2013Q2

REPORT INFORMATION
  Report Type: Spontaneous
  Country: DE (occurrence: DE)
  Receive Date: 20130420
  Receipt Date: 20130603
  Transmission Date: 20140414
  Serious: Yes (Other)
  Sender: FDA-Public Use
  Company Number: DE-B.I. PHARMACEUTICALS,INC./RIDGEFIELD-2013-DE-01102DE

PATIENT
  Sex: Female
  Weight: 84 kg

DRUGS (1)
  1. PRADAXA [Suspect]
     Indication: ATRIAL FIBRILLATION

REACTIONS (4)
  - Cerebrovascular accident [Unknown]
  - Abdominal discomfort [Unknown]
  - Dyspepsia [Recovered/Resolved]
  - Gastrooesophageal reflux disease [Recovered/Resolved]
